FAERS Safety Report 15565716 (Version 1)
Quarter: 2018Q4

REPORT INFORMATION
  Report Type: Other
  Country: JP (occurrence: JP)
  Receive Date: 20181030
  Receipt Date: 20181030
  Transmission Date: 20190205
  Serious: Yes (Death, Other)
  Sender: FDA-Public Use
  Company Number: JP-APPCO PHARMA LLC-2058211

PATIENT
  Age: 4 Year
  Sex: Female

DRUGS (2)
  1. VORICONAZOLE. [Suspect]
     Active Substance: VORICONAZOLE
     Indication: ANTIFUNGAL PROPHYLAXIS
     Route: 065
  2. FLUDARABINE/ARAC/GRANULOCYTE COLONY STIMULATING FACTOR [Concomitant]
     Route: 065

REACTIONS (2)
  - Fungal infection [Fatal]
  - Drug ineffective [Unknown]
